FAERS Safety Report 17548496 (Version 3)
Quarter: 2025Q3

REPORT INFORMATION
  Report Type: Spontaneous
  Country: EU (occurrence: EU)
  Receive Date: 20200317
  Receipt Date: 20250706
  Transmission Date: 20251021
  Serious: Yes (Other)
  Sender: AUROBINDO
  Company Number: EU-ORION CORPORATION ORION PHARMA-PARO2020-0001

PATIENT
  Age: 67 Year
  Sex: Male

DRUGS (13)
  1. AMLODIPINE [Interacting]
     Active Substance: AMLODIPINE BESYLATE
     Indication: Hypertension
     Route: 065
  2. AMLODIPINE [Interacting]
     Active Substance: AMLODIPINE BESYLATE
     Indication: Coronary artery disease
  3. METOPROLOL [Interacting]
     Active Substance: METOPROLOL
     Indication: Cardiovascular disorder
     Route: 065
  4. PAROXETINE [Interacting]
     Active Substance: PAROXETINE
     Indication: Antidepressant therapy
     Route: 065
  5. SERTRALINE [Interacting]
     Active Substance: SERTRALINE HYDROCHLORIDE
     Indication: Antidepressant therapy
     Route: 065
  6. FUROSEMIDE [Suspect]
     Active Substance: FUROSEMIDE
     Indication: Product used for unknown indication
     Route: 065
  7. CHLORTHALIDONE [Concomitant]
     Active Substance: CHLORTHALIDONE
     Indication: Product used for unknown indication
     Route: 065
  8. PERINDOPRIL [Concomitant]
     Active Substance: PERINDOPRIL
     Indication: Product used for unknown indication
     Route: 065
  9. ASPIRIN [Concomitant]
     Active Substance: ASPIRIN
     Indication: Product used for unknown indication
     Route: 065
  10. ZOFENOPRIL [Concomitant]
     Active Substance: ZOFENOPRIL
     Indication: Hypertension
     Route: 065
  11. NEBIVOLOL [Concomitant]
     Active Substance: NEBIVOLOL
     Indication: Hypertension
     Route: 065
  12. ENALAPRIL [Concomitant]
     Active Substance: ENALAPRIL
     Indication: Product used for unknown indication
     Route: 065
  13. DIGOXIN [Concomitant]
     Active Substance: DIGOXIN
     Indication: Product used for unknown indication
     Route: 065

REACTIONS (5)
  - Bradycardia [Unknown]
  - Drug interaction [Unknown]
  - Thrombosis [Unknown]
  - Headache [Unknown]
  - Joint swelling [Unknown]
